FAERS Safety Report 20679190 (Version 2)
Quarter: 2023Q2

REPORT INFORMATION
  Report Type: Other
  Country: US (occurrence: US)
  Receive Date: 20220406
  Receipt Date: 20230627
  Transmission Date: 20230721
  Serious: Yes (Death)
  Sender: FDA-Public Use
  Company Number: US-INTERCEPT-PM2022000691

PATIENT
  Age: 76 Year
  Sex: Female

DRUGS (2)
  1. OCALIVA [Suspect]
     Active Substance: OBETICHOLIC ACID
     Indication: Primary biliary cholangitis
     Dosage: 10 MILLIGRAM, QD
     Route: 048
     Dates: start: 201601, end: 201905
  2. OCALIVA [Suspect]
     Active Substance: OBETICHOLIC ACID
     Dosage: 5 MILLIGRAM, QD
     Route: 048
     Dates: start: 201908, end: 20220322

REACTIONS (8)
  - Death [Fatal]
  - Sinus rhythm [Unknown]
  - Amnesia [Unknown]
  - Brain fog [Unknown]
  - Sleep apnoea syndrome [Unknown]
  - Blood pressure abnormal [Unknown]
  - Cardiac device implantation [Recovered/Resolved]
  - Dizziness [Unknown]

NARRATIVE: CASE EVENT DATE: 20220124
